FAERS Safety Report 6173402-3 (Version None)
Quarter: 2009Q2

REPORT INFORMATION
  Report Type: 
  Country: None (occurrence: None)
  Receive Date: 20090430
  Receipt Date: 20090417
  Transmission Date: 20091009
  Serious: Yes (Hospitalization, Other)
  Sender: FDA-Public Use
  Company Number: DE-WATSON-2009-01183

PATIENT
  Sex: Male

DRUGS (1)
  1. TRELSTAR LA [Suspect]
     Indication: PROSTATE CANCER
     Dosage: 11.25 MG, 1 IN 28D
     Route: 058
     Dates: start: 20090210, end: 20090210

REACTIONS (5)
  - ABDOMINAL PAIN [None]
  - CARDIOVASCULAR INSUFFICIENCY [None]
  - INJECTION SITE PAIN [None]
  - OFF LABEL USE [None]
  - SYNCOPE [None]
